FAERS Safety Report 9585783 (Version 1)
Quarter: 2013Q4

REPORT INFORMATION
  Report Type: Spontaneous
  Country: CA (occurrence: CA)
  Receive Date: 20131003
  Receipt Date: 20131003
  Transmission Date: 20140711
  Serious: Yes (Other)
  Sender: FDA-Public Use
  Company Number: CA-BRISTOL-MYERS SQUIBB COMPANY-19412170

PATIENT
  Age: 96 Year
  Sex: Male
  Weight: 56.8 kg

DRUGS (1)
  1. ELIQUIS [Suspect]

REACTIONS (3)
  - Dementia [Unknown]
  - Dysphagia [Unknown]
  - Wrong technique in drug usage process [Unknown]
